FAERS Safety Report 7587828-4 (Version None)
Quarter: 2011Q3

REPORT INFORMATION
  Report Type: 
  Country: None (occurrence: None)
  Receive Date: 20110705
  Receipt Date: 20110623
  Transmission Date: 20111222
  Serious: No
  Sender: FDA-Public Use
  Company Number: US-BIOGENIDEC-2011BI023258

PATIENT
  Sex: Female

DRUGS (2)
  1. TYSABRI [Suspect]
     Indication: MULTIPLE SCLEROSIS
     Route: 042
     Dates: start: 20110118
  2. CORTISONE ACETATE INJ [Concomitant]

REACTIONS (4)
  - ARTHROPATHY [None]
  - MALAISE [None]
  - ARTHRITIS [None]
  - ARTHRALGIA [None]
